FAERS Safety Report 6071748-0 (Version None)
Quarter: 2009Q1

REPORT INFORMATION
  Report Type: 
  Country: None (occurrence: None)
  Receive Date: 20090209
  Receipt Date: 20090209
  Transmission Date: 20090719
  Serious: Yes (Other)
  Sender: FDA-Public Use
  Company Number: None

PATIENT
  Sex: Female
  Weight: 66.2252 kg

DRUGS (1)
  1. ESTRADIOL TRANSDERMAL SYSTEM BY MYLAN [Suspect]
     Indication: ARTIFICIAL MENOPAUSE
     Dosage: .025MG/D WEEKLY CHANGE TRANSDERMAL 2-3 WEEKS
     Route: 062
     Dates: start: 20080101

REACTIONS (2)
  - APPLICATION SITE ERYTHEMA [None]
  - APPLICATION SITE IRRITATION [None]
